FAERS Safety Report 7381665-1 (Version None)
Quarter: 2011Q1

REPORT INFORMATION
  Report Type: 
  Country: None (occurrence: None)
  Receive Date: 20110329
  Receipt Date: 20100816
  Transmission Date: 20110831
  Serious: Yes (Life-Threatening, Hospitalization, Disabling, Other)
  Sender: FDA-Public Use
  Company Number: US-BAYER-201010686NA

PATIENT
  Sex: Female
  Weight: 98.182 kg

DRUGS (5)
  1. YAZ [Suspect]
     Indication: CONTRACEPTION
     Dosage: 1 DF (DAILY DOSE), QD, ORAL
     Route: 048
     Dates: start: 20060701, end: 20080601
  2. METHOTREXATE [Concomitant]
     Indication: RHEUMATOID ARTHRITIS
     Dates: start: 20070101
  3. NSAID'S [Concomitant]
     Indication: HEADACHE
  4. NSAID'S [Concomitant]
     Indication: PAIN
  5. NSAID'S [Concomitant]

REACTIONS (14)
  - PULMONARY EMBOLISM [None]
  - HYPOXIC-ISCHAEMIC ENCEPHALOPATHY [None]
  - NERVOUS SYSTEM DISORDER [None]
  - DYSPNOEA [None]
  - MOTOR DYSFUNCTION [None]
  - SYNCOPE [None]
  - SPEECH DISORDER [None]
  - VISUAL IMPAIRMENT [None]
  - CONVULSION [None]
  - TREMOR [None]
  - BACK PAIN [None]
  - CYANOSIS [None]
  - CARDIO-RESPIRATORY ARREST [None]
  - CEREBROVASCULAR ACCIDENT [None]
